FAERS Safety Report 4941632-1 (Version None)
Quarter: 2006Q1

REPORT INFORMATION
  Report Type: 
  Country: None (occurrence: None)
  Receive Date: 20060308
  Receipt Date: 20060301
  Transmission Date: 20060701
  Serious: Yes (Other)
  Sender: FDA-Public Use
  Company Number: HQWYE105702MAR06

PATIENT

DRUGS (1)
  1. CORDARONE [Suspect]
     Dosage: 200 MG TABLET
     Route: 048

REACTIONS (3)
  - COLOUR BLINDNESS [None]
  - OPTIC NEUROPATHY [None]
  - VISUAL EVOKED POTENTIALS ABNORMAL [None]
